FAERS Safety Report 8920336 (Version 3)
Quarter: 2013Q1

REPORT INFORMATION
  Report Type: Report from Study
  Country: CO (occurrence: CO)
  Receive Date: 20121122
  Receipt Date: 20130110
  Transmission Date: 20140127
  Serious: Yes (Other)
  Sender: FDA-Public Use
  Company Number: CO-ROCHE-1157936

PATIENT
  Sex: Male

DRUGS (1)
  1. MYCOPHENOLATE MOFETIL [Suspect]
     Indication: RENAL TRANSPLANT
     Route: 048
     Dates: start: 20110822

REACTIONS (3)
  - Kidney transplant rejection [Not Recovered/Not Resolved]
  - Gastroenteritis [Recovered/Resolved]
  - Tachycardia [Recovered/Resolved]
